FAERS Safety Report 19091209 (Version 1)
Quarter: 2021Q2

REPORT INFORMATION
  Report Type: Spontaneous
  Country: US (occurrence: US)
  Receive Date: 20210405
  Receipt Date: 20210405
  Transmission Date: 20210717
  Serious: No
  Sender: FDA-Public Use
  Company Number: US-DRREDDYS-USA/USA/21/0133206

PATIENT
  Age: 18 Year
  Sex: Female

DRUGS (1)
  1. ZENATANE [Suspect]
     Active Substance: ISOTRETINOIN
     Indication: PRODUCT USED FOR UNKNOWN INDICATION
     Dosage: RMA ISSUE DATE: 20/1/2016 4:58:39 PM, 18/2/2016 5:57:54 PM, 21/3/2016 6:25:34 PM, 28/4/2016 3:27:38
     Route: 048

REACTIONS (1)
  - White blood cell count decreased [Unknown]
